FAERS Safety Report 10691891 (Version 2)
Quarter: 2015Q1

REPORT INFORMATION
  Report Type: Report from Study
  Country: US (occurrence: US)
  Receive Date: 20150105
  Receipt Date: 20150105
  Transmission Date: 20150720
  Serious: Yes (Hospitalization)
  Sender: FDA-Public Use
  Company Number: US-AMGEN-2012-0523

PATIENT
  Age: 78 Year
  Sex: Female

DRUGS (2)
  1. CARFILZOMIB [Suspect]
     Active Substance: CARFILZOMIB
     Indication: PLASMA CELL MYELOMA
     Dates: start: 20110720, end: 20111103
  2. DEXAMETHASONE. [Concomitant]
     Active Substance: DEXAMETHASONE
     Dosage: 8 MG, ONE TIME DOSE
     Route: 065

REACTIONS (6)
  - Sepsis [Recovered/Resolved]
  - Pancytopenia [Recovered/Resolved]
  - Hypersensitivity [Recovered/Resolved]
  - Skin infection [Recovered/Resolved]
  - Febrile neutropenia [Recovered/Resolved]
  - Hyperkalaemia [Recovered/Resolved]

NARRATIVE: CASE EVENT DATE: 20111109
